FAERS Safety Report 17368116 (Version 1)
Quarter: 2020Q1

REPORT INFORMATION
  Report Type: Spontaneous
  Country: US (occurrence: US)
  Receive Date: 20200204
  Receipt Date: 20200204
  Transmission Date: 20200409
  Serious: Yes (Other)
  Sender: FDA-Public Use
  Company Number: US-GENBIOPRO-2019GEN00004

PATIENT
  Age: 29 Year
  Sex: Female
  Weight: 73.92 kg

DRUGS (3)
  1. PHENTERMINE. [Concomitant]
     Active Substance: PHENTERMINE
  2. MIFEPRISTONE [Suspect]
     Active Substance: MIFEPRISTONE
     Indication: ABORTION INDUCED
     Dosage: 200 MG, ONCE
     Route: 048
     Dates: start: 20191017, end: 20191017
  3. MISOPROSTOL. [Suspect]
     Active Substance: MISOPROSTOL
     Indication: ABORTION INDUCED
     Dosage: 800 MG, ONCE
     Route: 002
     Dates: start: 20191018, end: 20191018

REACTIONS (2)
  - Haemoglobin decreased [Unknown]
  - Dysfunctional uterine bleeding [Unknown]

NARRATIVE: CASE EVENT DATE: 2019
